FAERS Safety Report 7794236-X (Version None)
Quarter: 2011Q3

REPORT INFORMATION
  Report Type: 
  Country: None (occurrence: None)
  Receive Date: 20110929
  Receipt Date: 20110920
  Transmission Date: 20111222
  Serious: Yes (Other)
  Sender: FDA-Public Use
  Company Number: 2011MA014130

PATIENT
  Age: 21 Year
  Sex: Female

DRUGS (2)
  1. CETIRIZINE HCL [Suspect]
     Indication: HYPERSENSITIVITY
     Dates: start: 20061116, end: 20110501
  2. LAMICTAL [Concomitant]

REACTIONS (1)
  - EPILEPSY [None]
